FAERS Safety Report 6178960-0 (Version None)
Quarter: 2009Q2

REPORT INFORMATION
  Report Type: 
  Country: None (occurrence: None)
  Receive Date: 20090505
  Receipt Date: 20090428
  Transmission Date: 20091009
  Serious: Yes (Hospitalization)
  Sender: FDA-Public Use
  Company Number: FR-BRISTOL-MYERS SQUIBB COMPANY-14602924

PATIENT
  Age: 23 Year
  Sex: Female

DRUGS (5)
  1. ABILIFY [Suspect]
     Indication: MANIA
     Dosage: INITIATED ON 30MAR09,10MG/D DOSE INCREASED TO 15MG/D,  ON 21APR09, AGAIN DOSE INCREASED TO 20MG/D
     Route: 048
     Dates: start: 20090330
  2. ABILIFY [Suspect]
     Indication: DEPRESSION
     Dosage: INITIATED ON 30MAR09,10MG/D DOSE INCREASED TO 15MG/D,  ON 21APR09, AGAIN DOSE INCREASED TO 20MG/D
     Route: 048
     Dates: start: 20090330
  3. ABILIFY [Suspect]
     Indication: BIPOLAR DISORDER
     Dosage: INITIATED ON 30MAR09,10MG/D DOSE INCREASED TO 15MG/D,  ON 21APR09, AGAIN DOSE INCREASED TO 20MG/D
     Route: 048
     Dates: start: 20090330
  4. SEROPLEX [Suspect]
     Indication: ANTIDEPRESSANT THERAPY
     Route: 048
  5. ZYPREXA [Concomitant]
     Indication: BIPOLAR DISORDER
     Dosage: DOSE DECREASED TO 5MG, THEN WITHDRAWN

REACTIONS (5)
  - DEPRESSED MOOD [None]
  - FATIGUE [None]
  - HALLUCINATION, AUDITORY [None]
  - PAIN IN EXTREMITY [None]
  - SOMNOLENCE [None]
